FAERS Safety Report 11095950 (Version 1)
Quarter: 2015Q2

REPORT INFORMATION
  Report Type: Spontaneous
  Country: US (occurrence: None)
  Receive Date: 20150506
  Receipt Date: 20150506
  Transmission Date: 20150821
  Serious: Yes (Other)
  Sender: FDA-Public Use
  Company Number: None

PATIENT
  Age: 31 Year
  Sex: Male
  Weight: 70.76 kg

DRUGS (12)
  1. ZYPREXA ZYDIS [Concomitant]
     Active Substance: OLANZAPINE
  2. NAPROFEN [Concomitant]
  3. DEPALCOTE [Concomitant]
  4. MELATONIN [Concomitant]
     Active Substance: MELATONIN
  5. VISTARIL [Concomitant]
     Active Substance: HYDROXYZINE PAMOATE
  6. CLONIDINE. [Concomitant]
     Active Substance: CLONIDINE
  7. PHENTOIN [Concomitant]
  8. MULTIVITAMIN [Concomitant]
     Active Substance: VITAMINS
  9. LEVOTHYROXINE [Concomitant]
     Active Substance: LEVOTHYROXINE
  10. TRAMADOL [Concomitant]
     Active Substance: TRAMADOL
  11. RISPERIDONE 3MG TABLET [Suspect]
     Active Substance: RISPERIDONE
     Indication: PARANOIA
     Dosage: STRENGTH:  3MG TAB, QUANTITY:  2 PILLS (TWICE A DAY), FREQUENCY:  TWICE A DAY, ROUTE:  BY MOUTH
     Route: 048
     Dates: start: 20090304, end: 20110428
  12. ANANTADINE [Concomitant]

REACTIONS (1)
  - Gynaecomastia [None]

NARRATIVE: CASE EVENT DATE: 20090304
